FAERS Safety Report 5888854-3 (Version None)
Quarter: 2008Q3

REPORT INFORMATION
  Report Type: 
  Country: None (occurrence: None)
  Receive Date: 20080919
  Receipt Date: 20080910
  Transmission Date: 20090109
  Serious: Yes (Other)
  Sender: FDA-Public Use
  Company Number: PHHY2008BR21149

PATIENT
  Sex: Male

DRUGS (2)
  1. SANDIMMUNE [Suspect]
     Indication: APLASTIC ANAEMIA
     Dosage: 170 MG/DAY
     Dates: start: 20080516, end: 20080516
  2. SANDIMMUNE [Suspect]
     Dosage: UNK
     Dates: start: 20080516, end: 20080516

REACTIONS (4)
  - FLUSHING [None]
  - MALAISE [None]
  - ORAL PRURITUS [None]
  - PRURITUS GENERALISED [None]
